FAERS Safety Report 6359468-6 (Version None)
Quarter: 2009Q3

REPORT INFORMATION
  Report Type: 
  Country: None (occurrence: None)
  Receive Date: 20090917
  Receipt Date: 20090915
  Transmission Date: 20100115
  Serious: Yes (Other)
  Sender: FDA-Public Use
  Company Number: FR-TEVA-208917ISR

PATIENT
  Sex: Female

DRUGS (1)
  1. AMOXICILLIN [Suspect]
     Indication: TONSILLITIS
     Route: 048
     Dates: start: 20090822, end: 20090827

REACTIONS (1)
  - DERMATITIS BULLOUS [None]
